FAERS Safety Report 5661058-5 (Version None)
Quarter: 2008Q1

REPORT INFORMATION
  Report Type: 
  Country: None (occurrence: None)
  Receive Date: 20080311
  Receipt Date: 20080303
  Transmission Date: 20080703
  Serious: Yes (Hospitalization)
  Sender: FDA-Public Use
  Company Number: CA-BOEHRINGER INGELHEIM GMBH, GERMANY-2008-CN-00102CN

PATIENT
  Sex: Male

DRUGS (8)
  1. VIRAMUNE [Suspect]
     Indication: HIV TEST POSITIVE
  2. AZT [Concomitant]
  3. LAMIVUDINE [Concomitant]
  4. SAQUINAVIR [Concomitant]
  5. RITONAVIR [Concomitant]
  6. ACYCLOVIR [Concomitant]
  7. BACTRIM [Concomitant]
  8. TESTOSTERONE [Concomitant]
     Indication: HYPOGONADISM

REACTIONS (1)
  - PNEUMONIA [None]
